FAERS Safety Report 25934850 (Version 2)
Quarter: 2025Q4

REPORT INFORMATION
  Report Type: Spontaneous
  Country: CA (occurrence: CA)
  Receive Date: 20251017
  Receipt Date: 20251205
  Transmission Date: 20260117
  Serious: Yes (Other)
  Sender: PFIZER
  Company Number: CA-PFIZER INC-202500204699

PATIENT
  Age: 89 Year
  Sex: Male

DRUGS (17)
  1. VYNDAQEL [Suspect]
     Active Substance: TAFAMIDIS MEGLUMINE
     Indication: Cardiac amyloidosis
     Dosage: 80 MG, 1X/DAY
     Route: 048
     Dates: start: 20211221, end: 2025
  2. PANTOPRAZOLE SODIUM [Concomitant]
     Active Substance: PANTOPRAZOLE SODIUM
     Dosage: 40 MG, 1X/DAY
  3. NITROGLYCERIN [Concomitant]
     Active Substance: NITROGLYCERIN
     Dosage: 0.4 MG DAILY
  4. FLOMAX [Concomitant]
     Active Substance: TAMSULOSIN HYDROCHLORIDE
     Dosage: 0.4 MG, DAILY
  5. TRAZODONE [Concomitant]
     Active Substance: TRAZODONE HYDROCHLORIDE
     Dosage: 1 DF, 1X/DAY
  6. CRESTOR [Concomitant]
     Active Substance: ROSUVASTATIN CALCIUM
     Dosage: 20 MG, 1X/DAY
  7. BISOPROLOL [Concomitant]
     Active Substance: BISOPROLOL
     Dosage: 5 MG, 1X/DAY
  8. APIXABAN [Concomitant]
     Active Substance: APIXABAN
     Dosage: 1 DF, 2X/DAY(2.5MG)
  9. TERAZOSIN [Concomitant]
     Active Substance: TERAZOSIN HYDROCHLORIDE
     Dosage: 1 MG, 1X/DAY
  10. SENOKOT [Concomitant]
     Active Substance: SENNOSIDES
     Dosage: 1 DF
  11. POLYETHYLENE GLYCOL 3350 [Concomitant]
     Active Substance: POLYETHYLENE GLYCOL 3350
     Dosage: 1 DF, AS NEEDED
  12. LASIX [Concomitant]
     Active Substance: FUROSEMIDE
     Dosage: 80 MG AM AND 40 MG PM
  13. VENTOLIN [Concomitant]
     Active Substance: ALBUTEROL SULFATE
     Dosage: 1 DF, AS NEEDED
  14. ADVAIR HFA [Concomitant]
     Active Substance: FLUTICASONE PROPIONATE\SALMETEROL XINAFOATE
     Dosage: 1 DF
  15. FERROUS GLUCONATE [Concomitant]
     Active Substance: FERROUS GLUCONATE
     Dosage: 300 MG, 2X/DAY
  16. METOLAZONE [Concomitant]
     Active Substance: METOLAZONE
     Dosage: 2.5 MG, AS NEEDED
  17. GLYCOPYRROLATE [Concomitant]
     Active Substance: GLYCOPYRROLATE
     Dosage: 1 DF, AS NEEDED

REACTIONS (1)
  - Cardiac failure chronic [Not Recovered/Not Resolved]
